FAERS Safety Report 4390957-X (Version None)
Quarter: 2004Q3

REPORT INFORMATION
  Report Type: 
  Country: None (occurrence: None)
  Receive Date: 20040706
  Receipt Date: 20040628
  Transmission Date: 20050211
  Serious: Yes (Death)
  Sender: FDA-Public Use
  Company Number: 04-06-0921

PATIENT
  Age: 35 Year
  Sex: Female

DRUGS (1)
  1. CLOZAPINE [Suspect]
     Indication: PSYCHOTIC DISORDER
     Dosage: 225-475 MG QD ORAL
     Route: 048
     Dates: start: 20001101, end: 20040601

REACTIONS (2)
  - CHOKING [None]
  - OBSTRUCTIVE AIRWAYS DISORDER [None]
